FAERS Safety Report 25122060 (Version 1)
Quarter: 2025Q1

REPORT INFORMATION
  Report Type: Spontaneous
  Country: AU (occurrence: AU)
  Receive Date: 20250326
  Receipt Date: 20250326
  Transmission Date: 20250409
  Serious: Yes (Other)
  Sender: TAKEDA
  Company Number: AU-TAKEDA-2025TUS030069

PATIENT
  Age: 62 Year
  Sex: Male

DRUGS (2)
  1. VYVANSE [Suspect]
     Active Substance: LISDEXAMFETAMINE DIMESYLATE
     Indication: Attention deficit hyperactivity disorder
     Dosage: 50 MILLIGRAM, QD
     Dates: start: 2022
  2. AMPHETAMINE [Concomitant]
     Active Substance: AMPHETAMINE
     Dosage: 5 MILLIGRAM, QD

REACTIONS (1)
  - Venous thrombosis [Unknown]
